FAERS Safety Report 26063025 (Version 1)
Quarter: 2025Q4

REPORT INFORMATION
  Report Type: Spontaneous
  Country: US (occurrence: US)
  Receive Date: 20251119
  Receipt Date: 20251119
  Transmission Date: 20260118
  Serious: No
  Sender: LEADING PHARMA
  Company Number: US-LEADINGPHARMA-US-2025LEASPO00211

PATIENT
  Sex: Male

DRUGS (4)
  1. PROCHLORPERAZINE MALEATE [Suspect]
     Active Substance: PROCHLORPERAZINE MALEATE
     Indication: Nausea
     Route: 065
     Dates: start: 202510
  2. IMODIUM A-D [Concomitant]
     Active Substance: LOPERAMIDE HYDROCHLORIDE
     Indication: Diarrhoea
     Route: 065
     Dates: start: 202510
  3. TYLENOL [Concomitant]
     Active Substance: ACETAMINOPHEN
     Indication: Nausea
     Route: 065
     Dates: start: 202510
  4. ZINC OXIDE [Concomitant]
     Active Substance: ZINC OXIDE
     Indication: Haemorrhage
     Dosage: TUBE
     Route: 065
     Dates: start: 202510

REACTIONS (2)
  - Diarrhoea [Recovered/Resolved]
  - Heart rate increased [Recovered/Resolved]

NARRATIVE: CASE EVENT DATE: 20251001
